FAERS Safety Report 5930654-X (Version None)
Quarter: 2008Q4

REPORT INFORMATION
  Report Type: 
  Country: None (occurrence: None)
  Receive Date: 20081027
  Receipt Date: 20081014
  Transmission Date: 20090506
  Serious: Yes (Life-Threatening, Other)
  Sender: FDA-Public Use
  Company Number: FR-BAYER-200828311GPV

PATIENT
  Age: 21 Month
  Sex: Male

DRUGS (1)
  1. KOGENATE [Suspect]
     Indication: FACTOR VIII DEFICIENCY
     Route: 042

REACTIONS (2)
  - FACTOR VIII INHIBITION [None]
  - INTRACRANIAL HAEMATOMA [None]
